FAERS Safety Report 13939248 (Version 1)
Quarter: 2017Q3

REPORT INFORMATION
  Report Type: Spontaneous
  Country: IN (occurrence: IN)
  Receive Date: 20170906
  Receipt Date: 20170906
  Transmission Date: 20171127
  Serious: Yes (Life-Threatening, Other)
  Sender: FDA-Public Use
  Company Number: IN-MACLEODS PHARMACEUTICALS US LTD-MAC2017005808

PATIENT

DRUGS (3)
  1. QUETIAPINE 50MG TABLET [Suspect]
     Active Substance: QUETIAPINE
     Indication: HALLUCINATION
     Dosage: 50 MG, UNK
     Route: 048
  2. AMLODIPINE BESYLATE TABLET [Concomitant]
     Active Substance: AMLODIPINE BESYLATE
     Indication: HYPERTENSION
     Dosage: 5 MG, BID
     Route: 048
  3. ESCITALOPRAM [Suspect]
     Active Substance: ESCITALOPRAM OXALATE
     Indication: DEPRESSION
     Dosage: 10 MG, UNK
     Route: 048

REACTIONS (11)
  - Condition aggravated [Recovering/Resolving]
  - Dysarthria [Recovering/Resolving]
  - Myxoedema coma [Recovering/Resolving]
  - Hypothyroidism [Recovering/Resolving]
  - Fatigue [Recovering/Resolving]
  - Oedema peripheral [Recovering/Resolving]
  - Dry skin [Recovering/Resolving]
  - Hypokinesia [Recovering/Resolving]
  - Periorbital oedema [Recovering/Resolving]
  - Somnolence [Recovering/Resolving]
  - Macroglossia [Recovering/Resolving]
